FAERS Safety Report 12053620 (Version 1)
Quarter: 2016Q1

REPORT INFORMATION
  Report Type: Spontaneous
  Country: US (occurrence: US)
  Receive Date: 20160209
  Receipt Date: 20160209
  Transmission Date: 20160526
  Serious: Yes (Hospitalization)
  Sender: FDA-Public Use
  Company Number: US-GRANULES INDIA LIMITED-1047519

PATIENT
  Age: 57 Year
  Sex: Male
  Weight: 68.18 kg

DRUGS (1)
  1. METFORMIN HYDROCHLORIDE. [Suspect]
     Active Substance: METFORMIN HYDROCHLORIDE
     Indication: TYPE 2 DIABETES MELLITUS
     Route: 048
     Dates: start: 20010105, end: 20160204

REACTIONS (9)
  - Cholelithiasis [None]
  - Gout [None]
  - Blood pressure increased [None]
  - Pancreatic cyst [None]
  - No adverse event [Unknown]
  - Coeliac disease [None]
  - Hepatic enzyme abnormal [None]
  - Blood cholesterol increased [None]
  - Volume blood decreased [None]

NARRATIVE: CASE EVENT DATE: 20160127
